FAERS Safety Report 6010215-7 (Version None)
Quarter: 2008Q4

REPORT INFORMATION
  Report Type: 
  Country: None (occurrence: None)
  Receive Date: 20081218
  Receipt Date: 20080124
  Transmission Date: 20090506
  Serious: No
  Sender: FDA-Public Use
  Company Number: A0696817A

PATIENT
  Age: 74 Year
  Sex: Male
  Weight: 90.9 kg

DRUGS (6)
  1. FLUTICASONE PROPIONATE [Suspect]
     Indication: NASAL CONGESTION
     Dosage: 4SPR AT NIGHT
     Route: 045
     Dates: start: 20070520
  2. SALINE NASAL SPRAY [Concomitant]
     Dates: start: 20070520
  3. HYTRIN [Concomitant]
  4. RANITIDINE [Concomitant]
  5. METFORMIN HCL [Concomitant]
  6. GLYBURIDE [Concomitant]

REACTIONS (2)
  - DRUG EFFECT DECREASED [None]
  - PRODUCT QUALITY ISSUE [None]
